FAERS Safety Report 9001050 (Version 1)
Quarter: 2013Q1

REPORT INFORMATION
  Report Type: Spontaneous
  Country: US (occurrence: None)
  Receive Date: 20130103
  Receipt Date: 20130103
  Transmission Date: 20140127
  Serious: No
  Sender: FDA-Public Use
  Company Number: None

PATIENT
  Age: 12 Year
  Sex: Male
  Weight: 55.34 kg

DRUGS (1)
  1. ADDERALL XR [Suspect]
     Dosage: 20 MG Q AM ORALLY
     Route: 048

REACTIONS (2)
  - Lacrimation increased [None]
  - Pruritus [None]
